FAERS Safety Report 12519597 (Version 2)
Quarter: 2016Q3

REPORT INFORMATION
  Report Type: Report from Study
  Country: CO (occurrence: CO)
  Receive Date: 20160630
  Receipt Date: 20160804
  Transmission Date: 20161109
  Serious: Yes (Hospitalization)
  Sender: FDA-Public Use
  Company Number: PHHY2016CO089243

PATIENT
  Sex: Female
  Weight: 60 kg

DRUGS (2)
  1. REVOLADE [Suspect]
     Active Substance: ELTROMBOPAG
     Indication: IMMUNE THROMBOCYTOPENIC PURPURA
     Dosage: 50 MG, QD (EVERY 24 HOURS)
     Route: 048
  2. REVOLADE [Suspect]
     Active Substance: ELTROMBOPAG
     Dosage: 25 MG, QD (EVERY 24 HOURS)
     Route: 048
     Dates: start: 20160404, end: 20160627

REACTIONS (2)
  - Gastrointestinal neoplasm [Unknown]
  - Platelet count increased [Unknown]
